FAERS Safety Report 12200781 (Version 3)
Quarter: 2016Q2

REPORT INFORMATION
  Report Type: Spontaneous
  Country: US (occurrence: US)
  Receive Date: 20160322
  Receipt Date: 20160427
  Transmission Date: 20160815
  Serious: Yes (Other)
  Sender: FDA-Public Use
  Company Number: US-BAYER-2016-055400

PATIENT
  Age: 25 Year
  Sex: Female
  Weight: 64.85 kg

DRUGS (1)
  1. SKYLA [Suspect]
     Active Substance: LEVONORGESTREL
     Indication: CONTRACEPTION
     Dosage: 14 MCG/24HR, CONT
     Route: 015
     Dates: start: 20151029, end: 20160310

REACTIONS (4)
  - Drug ineffective [None]
  - Pelvic pain [None]
  - Localised intraabdominal fluid collection [None]
  - Ectopic pregnancy with contraceptive device [None]
